FAERS Safety Report 6969625-3 (Version None)
Quarter: 2010Q3

REPORT INFORMATION
  Report Type: 
  Country: None (occurrence: None)
  Receive Date: 20100907
  Receipt Date: 20100901
  Transmission Date: 20110219
  Serious: Yes (Hospitalization, Other)
  Sender: FDA-Public Use
  Company Number: CH-BRISTOL-MYERS SQUIBB COMPANY-15266760

PATIENT
  Age: 37 Year
  Sex: Female

DRUGS (10)
  1. ABILIFY [Suspect]
     Indication: DEPRESSION
     Dosage: ALSO 15MG/DAY,DOSAGE INTERRUPTED:21APR10
     Route: 048
     Dates: start: 20100101, end: 20100421
  2. PRAZINE [Suspect]
     Indication: ANXIETY DISORDER
     Route: 048
     Dates: start: 20100317, end: 20100330
  3. HALDOL [Suspect]
     Indication: PSYCHOTIC DISORDER
     Dates: start: 20100405, end: 20100423
  4. HALDOL [Suspect]
     Indication: DEPRESSION
     Dates: start: 20100405, end: 20100423
  5. RISPERDAL [Suspect]
     Indication: DEPRESSION
     Dosage: THERAPY DATES:22APR10:23APR10,25APR10:28APR10
     Route: 048
     Dates: start: 20100422, end: 20100428
  6. RISPERDAL [Suspect]
     Indication: PSYCHOTIC DISORDER
     Dosage: THERAPY DATES:22APR10:23APR10,25APR10:28APR10
     Route: 048
     Dates: start: 20100422, end: 20100428
  7. CIPRALEX [Suspect]
     Indication: DEPRESSION
     Route: 048
     Dates: start: 20100101, end: 20100430
  8. STILNOX [Concomitant]
     Indication: SLEEP DISORDER
     Route: 048
     Dates: start: 20100101, end: 20100401
  9. RIVOTRIL [Concomitant]
     Indication: ANXIETY DISORDER
     Route: 048
     Dates: start: 20100401, end: 20100401
  10. ENTUMINE [Concomitant]
     Indication: ANXIETY DISORDER
     Dates: start: 20100427, end: 20100427

REACTIONS (3)
  - ANXIETY [None]
  - ELECTROCARDIOGRAM QT PROLONGED [None]
  - MOOD ALTERED [None]
